FAERS Safety Report 4503323-0 (Version None)
Quarter: 2004Q4

REPORT INFORMATION
  Report Type: 
  Country: None (occurrence: None)
  Receive Date: 20041112
  Receipt Date: 20041105
  Transmission Date: 20050328
  Serious: Yes (Hospitalization)
  Sender: FDA-Public Use
  Company Number: S04-USA-06123-01

PATIENT
  Age: 83 Year
  Sex: Male
  Weight: 74.8435 kg

DRUGS (10)
  1. NAMENDA [Suspect]
     Indication: DEMENTIA ALZHEIMER'S TYPE
     Dosage: 5 MG QD PO
     Route: 048
     Dates: start: 20040910
  2. ALTACE (RAMIRIL) [Concomitant]
  3. NITROGLYCERIN [Concomitant]
  4. METOPROLOL [Concomitant]
  5. THYROID TAB [Concomitant]
  6. PROSCAR [Concomitant]
  7. TRAZODONE HCL [Concomitant]
  8. ASPIRIN [Concomitant]
  9. VITAMIN B-12 [Concomitant]
  10. SENOKOT [Concomitant]

REACTIONS (5)
  - HYPOTENSION [None]
  - INTERNATIONAL NORMALISED RATIO INCREASED [None]
  - MOBILITY DECREASED [None]
  - PROTHROMBIN TIME PROLONGED [None]
  - THROMBOSIS [None]
